FAERS Safety Report 6618500-2 (Version None)
Quarter: 2010Q1

REPORT INFORMATION
  Report Type: 
  Country: None (occurrence: None)
  Receive Date: 20100308
  Receipt Date: 20100304
  Transmission Date: 20100710
  Serious: Yes (Hospitalization)
  Sender: FDA-Public Use
  Company Number: US-ALLERGAN-1002927US

PATIENT
  Age: 60 Year
  Sex: Female

DRUGS (3)
  1. BOTOX [Suspect]
     Indication: TORTICOLLIS
     Dosage: 150 UNITS, SINGLE
     Dates: start: 20100201, end: 20100201
  2. BOTOX [Suspect]
     Dosage: 100 UNITS, SINGLE
     Dates: start: 20091201, end: 20091201
  3. BOTOX [Suspect]
     Dosage: 100 UNITS, SINGLE

REACTIONS (1)
  - MUSCULAR WEAKNESS [None]
